FAERS Safety Report 21795882 (Version 1)
Quarter: 2022Q4

REPORT INFORMATION
  Report Type: Report from Study
  Country: US (occurrence: US)
  Receive Date: 20221229
  Receipt Date: 20221229
  Transmission Date: 20230112
  Serious: Yes (Hospitalization, Other)
  Sender: FDA-Public Use
  Company Number: US-BoehringerIngelheim-2021-BI-125578

PATIENT
  Age: 63 Year
  Sex: Male

DRUGS (1)
  1. OFEV [Suspect]
     Active Substance: NINTEDANIB
     Indication: Idiopathic pulmonary fibrosis
     Dosage: ADDITIONAL LOT NO-102653,103911
     Route: 048
     Dates: start: 20210826

REACTIONS (10)
  - Lung disorder [Unknown]
  - Rhinovirus infection [Unknown]
  - Respiratory tract congestion [Unknown]
  - Haemorrhagic diathesis [Unknown]
  - Fatigue [Not Recovered/Not Resolved]
  - Skin discolouration [Unknown]
  - Diarrhoea [Not Recovered/Not Resolved]
  - Cough [Not Recovered/Not Resolved]
  - Blood pressure increased [Unknown]
  - Somnolence [Unknown]

NARRATIVE: CASE EVENT DATE: 20210801
